FAERS Safety Report 24450404 (Version 1)
Quarter: 2024Q4

REPORT INFORMATION
  Report Type: Spontaneous
  Country: DK (occurrence: DK)
  Receive Date: 20241017
  Receipt Date: 20241017
  Transmission Date: 20250115
  Serious: Yes (Other)
  Sender: Haleon PLC
  Company Number: DK-002147023-NVSC2021DK227767

PATIENT
  Age: 66 Year
  Sex: Female

DRUGS (1)
  1. TERBINAFINE [Suspect]
     Active Substance: TERBINAFINE\TERBINAFINE HYDROCHLORIDE
     Indication: Onychomycosis
     Dosage: UNK
     Route: 048

REACTIONS (1)
  - Pathogen resistance [Unknown]
